FAERS Safety Report 6325680-5 (Version None)
Quarter: 2009Q3

REPORT INFORMATION
  Report Type: 
  Country: None (occurrence: None)
  Receive Date: 20090824
  Receipt Date: 20090722
  Transmission Date: 20100115
  Serious: No
  Sender: FDA-Public Use
  Company Number: US-ABBOTT-09P-163-0586883-00

PATIENT
  Sex: Male
  Weight: 83.536 kg

DRUGS (7)
  1. NIASPAN [Suspect]
     Indication: BLOOD CHOLESTEROL INCREASED
     Route: 048
     Dates: start: 20081101
  2. NIASPAN [Suspect]
     Indication: HIGH DENSITY LIPOPROTEIN DECREASED
  3. CLARITIN [Concomitant]
     Indication: SEASONAL ALLERGY
     Route: 048
  4. FLOVENT [Concomitant]
     Indication: ASTHMA
     Route: 055
  5. FISH OIL [Concomitant]
     Indication: MEDICAL DIET
     Route: 048
  6. HYDROCHLOROTHIAZIDE [Concomitant]
     Indication: HYPERTENSION
     Route: 048
  7. OMEPRAZOLE [Concomitant]
     Indication: GASTROOESOPHAGEAL REFLUX DISEASE
     Route: 048

REACTIONS (3)
  - FLUSHING [None]
  - INSOMNIA [None]
  - PRURITUS [None]
